FAERS Safety Report 8163937-6 (Version None)
Quarter: 2012Q1

REPORT INFORMATION
  Report Type: 
  Country: None (occurrence: None)
  Receive Date: 20120224
  Receipt Date: 20120222
  Transmission Date: 20120608
  Serious: No
  Sender: FDA-Public Use
  Company Number: US-PFIZER INC-2012048891

PATIENT
  Age: 56 Year
  Sex: Female
  Weight: 62.585 kg

DRUGS (4)
  1. COMBIVENT [Concomitant]
     Indication: DYSPNOEA
     Dosage: UNK
  2. CHANTIX [Suspect]
     Indication: SMOKING CESSATION THERAPY
     Dosage: 0.5 MG, DAILY
     Route: 048
     Dates: start: 20120201, end: 20120201
  3. MELOXICAM [Concomitant]
     Indication: ARTHRITIS
     Dosage: 1-2 TABLETS OF 7.5 MG DAILY AT NIGHT
     Route: 048
  4. CHANTIX [Suspect]
     Dosage: UNK
     Route: 048
     Dates: start: 20120201

REACTIONS (1)
  - HYPERSOMNIA [None]
